FAERS Safety Report 9025452 (Version 1)
Quarter: 2013Q1

REPORT INFORMATION
  Report Type: Spontaneous
  Country: US (occurrence: US)
  Receive Date: 20130122
  Receipt Date: 20130122
  Transmission Date: 20140127
  Serious: Yes (Disabling)
  Sender: FDA-Public Use
  Company Number: US-ROXANE LABORATORIES, INC.-2013-RO-00108RO

PATIENT
  Sex: Male

DRUGS (7)
  1. PREDNISONE [Suspect]
  2. PICATO [Suspect]
     Route: 061
     Dates: start: 20130109
  3. GABAPENTIN [Concomitant]
  4. ALLOPURINOL [Concomitant]
  5. MOBIC [Concomitant]
  6. ENBREL [Concomitant]
  7. PLAQUENIL [Concomitant]

REACTIONS (1)
  - Vision blurred [Unknown]
